FAERS Safety Report 18817164 (Version 1)
Quarter: 2021Q1

REPORT INFORMATION
  Report Type: Spontaneous
  Country: US (occurrence: US)
  Receive Date: 20210201
  Receipt Date: 20210201
  Transmission Date: 20210419
  Serious: Yes (Hospitalization)
  Sender: FDA-Public Use
  Company Number: US-SERVIER-S21000441

PATIENT

DRUGS (10)
  1. ONCASPAR [Suspect]
     Active Substance: PEGASPARGASE
     Dosage: 3450 IU, ONE DOSE
     Route: 042
     Dates: start: 20210114, end: 20210114
  2. TN UNSPECIFIED [DIPHENHYDRAMINE HYDROCHLORIDE] [Concomitant]
     Active Substance: DIPHENHYDRAMINE HYDROCHLORIDE
     Indication: PREMEDICATION
     Dosage: 37.5 IU, ONE DOSE
     Route: 048
     Dates: start: 20210114, end: 20210114
  3. TN UNSPECIFIED [SODIUM CHLORIDE] [Concomitant]
     Active Substance: SODIUM CHLORIDE
     Indication: PREMEDICATION
     Dosage: 900 ML, ONE DOSE
     Route: 042
     Dates: start: 20210114, end: 20210114
  4. TN UNSPECIFIED [PARACETAMOL] [Concomitant]
     Active Substance: ACETAMINOPHEN
     Indication: PREMEDICATION
     Dosage: 650 MG, ONE DOSE
     Route: 048
     Dates: start: 20210114, end: 20210114
  5. TN UNSPECIFIED [ONDANSETRON HYDROCHLORIDE] [Concomitant]
     Active Substance: ONDANSETRON HYDROCHLORIDE
     Indication: PREMEDICATION
     Dosage: 8 MG, ONE DOSE
     Route: 048
     Dates: start: 20210114, end: 20210114
  6. ONCASPAR [Suspect]
     Active Substance: PEGASPARGASE
     Indication: ACUTE LYMPHOCYTIC LEUKAEMIA
     Dosage: UNK, FIRST DOSE
     Route: 065
     Dates: start: 20201021, end: 20201021
  7. ONCASPAR [Suspect]
     Active Substance: PEGASPARGASE
     Dosage: UNK, SECOND DOSE
     Route: 065
     Dates: start: 20201208, end: 20201208
  8. TN UNSPECIFIED [VINCRISTINE SULFATE] [Concomitant]
     Active Substance: VINCRISTINE SULFATE
     Indication: ACUTE LYMPHOCYTIC LEUKAEMIA
     Dosage: UNK
     Route: 065
     Dates: start: 20210115, end: 20210115
  9. TN UNSPECIFIED [FAMOTIDINE] [Concomitant]
     Active Substance: FAMOTIDINE
     Indication: PREMEDICATION
     Dosage: 20 MG, ONE DOSE
     Route: 048
     Dates: start: 20210114, end: 20210114
  10. TN UNSPECIFIED [HYDROCORTISONE] [Concomitant]
     Active Substance: HYDROCORTISONE
     Indication: PREMEDICATION
     Dosage: 45 MG, ONE DOSE
     Route: 042
     Dates: start: 20210114, end: 20210114

REACTIONS (2)
  - Hypersensitivity [Recovered/Resolved]
  - Drug level decreased [Recovered/Resolved]

NARRATIVE: CASE EVENT DATE: 2021
